FAERS Safety Report 4553521-5 (Version None)
Quarter: 2005Q1

REPORT INFORMATION
  Report Type: 
  Country: None (occurrence: None)
  Receive Date: 20050112
  Receipt Date: 20050105
  Transmission Date: 20050727
  Serious: Yes (Hospitalization)
  Sender: FDA-Public Use
  Company Number: 2004092477

PATIENT
  Age: 35 Year
  Sex: Male

DRUGS (2)
  1. TAHOR            (ATORVASTATIN) [Suspect]
     Indication: HYPERCHOLESTEROLAEMIA
     Dosage: 20 MG, (20 MG, 1 IN 1 D), ORAL
     Route: 048
     Dates: start: 20040813, end: 20040919
  2. MEBEVERINE HYDROCHLORIDE          (MEBEVERINE HYDROCHLORIDE) [Concomitant]

REACTIONS (3)
  - BLOOD CREATINE PHOSPHOKINASE ABNORMAL [None]
  - TENDON DISORDER [None]
  - VASCULAR PURPURA [None]
